FAERS Safety Report 5151633-9 (Version None)
Quarter: 2006Q4

REPORT INFORMATION
  Report Type: 
  Country: None (occurrence: None)
  Receive Date: 20061115
  Receipt Date: 20060802
  Transmission Date: 20070319
  Serious: No
  Sender: FDA-Public Use
  Company Number: US-BRISTOL-MYERS SQUIBB COMPANY-13464045

PATIENT
  Age: 50 Year
  Sex: Male
  Weight: 75 kg

DRUGS (5)
  1. SUSTIVA [Suspect]
     Indication: HIV INFECTION
     Route: 048
  2. COMBIVIR [Concomitant]
  3. COZAAR [Concomitant]
  4. NORVASC [Concomitant]
  5. PRAVACHOL [Concomitant]

REACTIONS (3)
  - DYSPEPSIA [None]
  - FLUSHING [None]
  - SOMNOLENCE [None]
